FAERS Safety Report 12156096 (Version 3)
Quarter: 2016Q2

REPORT INFORMATION
  Report Type: Spontaneous
  Country: DK (occurrence: DK)
  Receive Date: 20160307
  Receipt Date: 20160630
  Transmission Date: 20160815
  Serious: Yes (Death, Other)
  Sender: FDA-Public Use
  Company Number: DK-ELI_LILLY_AND_COMPANY-DK201603000289

PATIENT
  Age: 32 Year
  Sex: Male

DRUGS (1)
  1. ZYPREXA [Suspect]
     Active Substance: OLANZAPINE
     Indication: SUBSTANCE-INDUCED PSYCHOTIC DISORDER
     Dosage: 5 MG, QD
     Route: 048
     Dates: start: 20160218, end: 20160220

REACTIONS (4)
  - Persecutory delusion [Unknown]
  - Anxiety [Unknown]
  - Toxicity to various agents [Unknown]
  - Completed suicide [Fatal]

NARRATIVE: CASE EVENT DATE: 20160220
